FAERS Safety Report 11427932 (Version 1)
Quarter: 2015Q3

REPORT INFORMATION
  Report Type: Spontaneous
  Country: US (occurrence: US)
  Receive Date: 20150828
  Receipt Date: 20150828
  Transmission Date: 20151125
  Serious: No
  Sender: FDA-Public Use
  Company Number: US-PAR PHARMACEUTICAL, INC-2015SCPR014130

PATIENT

DRUGS (2)
  1. KEPPRA [Concomitant]
     Active Substance: LEVETIRACETAM
     Indication: SEIZURE
     Dosage: UNK, BID
     Route: 048
  2. MEGESTROL ACETATE. [Suspect]
     Active Substance: MEGESTROL ACETATE
     Indication: DECREASED APPETITE
     Dosage: 1 TSP, OD
     Route: 048
     Dates: start: 20150610, end: 20150707

REACTIONS (2)
  - Urine odour abnormal [Recovering/Resolving]
  - Chromaturia [Recovered/Resolved]

NARRATIVE: CASE EVENT DATE: 201506
